FAERS Safety Report 6150812-1 (Version None)
Quarter: 2009Q2

REPORT INFORMATION
  Report Type: 
  Country: None (occurrence: None)
  Receive Date: 20090408
  Receipt Date: 20090320
  Transmission Date: 20091009
  Serious: Yes (Hospitalization)
  Sender: FDA-Public Use
  Company Number: 2009AL001702

PATIENT
  Age: 54 Year
  Sex: Male

DRUGS (11)
  1. DIGOXIN [Suspect]
     Dosage: 0.25MG, DAILY, PO
     Route: 048
  2. NITROGLYCERIN [Concomitant]
  3. ALTACE [Concomitant]
  4. ASPIRIN [Concomitant]
  5. SPIRONOLACTONE [Concomitant]
  6. LASIX [Concomitant]
  7. COREG [Concomitant]
  8. AMIODARONE HCL [Concomitant]
  9. ISOSORBIDE [Concomitant]
  10. DINITRATE [Concomitant]
  11. LIPITOR [Concomitant]

REACTIONS (12)
  - CARDIAC FAILURE CONGESTIVE [None]
  - DIZZINESS [None]
  - DYSPNOEA [None]
  - ECONOMIC PROBLEM [None]
  - FATIGUE [None]
  - FLATULENCE [None]
  - HYPERLIPIDAEMIA [None]
  - HYPOTENSION [None]
  - INJURY [None]
  - PAIN [None]
  - PHOTOSENSITIVITY REACTION [None]
  - WEIGHT INCREASED [None]
